FAERS Safety Report 5029930-7 (Version None)
Quarter: 2006Q2

REPORT INFORMATION
  Report Type: 
  Country: None (occurrence: None)
  Receive Date: 20060620
  Receipt Date: 20060529
  Transmission Date: 20061013
  Serious: Yes (Hospitalization)
  Sender: FDA-Public Use
  Company Number: NL-GLAXOSMITHKLINE-B0426226A

PATIENT
  Age: 46 Year
  Sex: Male
  Weight: 65 kg

DRUGS (5)
  1. FLUTICASONE PROPIONATE + SALMETEROL XINAFOATE [Suspect]
     Indication: DRUG USE FOR UNKNOWN INDICATION
     Route: 055
  2. SALBUTAMOL SULPHATE [Concomitant]
     Route: 055
  3. TIOTROPIUM BROMIDE [Concomitant]
     Route: 055
  4. LIVOCAB [Concomitant]
     Route: 065
  5. LORAMET [Concomitant]
     Route: 065
     Dates: start: 19940101

REACTIONS (6)
  - CHEST DISCOMFORT [None]
  - CHEST PAIN [None]
  - DYSPNOEA [None]
  - MUSCLE SPASMS [None]
  - NAUSEA [None]
  - VOMITING [None]
